FAERS Safety Report 4968754-3 (Version None)
Quarter: 2006Q2

REPORT INFORMATION
  Report Type: 
  Country: None (occurrence: None)
  Receive Date: 20060411
  Receipt Date: 20060330
  Transmission Date: 20061013
  Serious: Yes (Hospitalization)
  Sender: FDA-Public Use
  Company Number: DE-BRISTOL-MYERS SQUIBB COMPANY-13331814

PATIENT
  Age: 51 Year
  Sex: Female

DRUGS (1)
  1. TAXOL [Suspect]
     Indication: BRONCHIAL CARCINOMA
     Dates: start: 20051101

REACTIONS (5)
  - AMNESIA [None]
  - APHASIA [None]
  - FALL [None]
  - NERVOUS SYSTEM DISORDER [None]
  - SYNCOPE [None]
